FAERS Safety Report 8120968-X (Version None)
Quarter: 2012Q1

REPORT INFORMATION
  Report Type: 
  Country: None (occurrence: None)
  Receive Date: 20120208
  Receipt Date: 20120126
  Transmission Date: 20120608
  Serious: Yes (Other)
  Sender: FDA-Public Use
  Company Number: US-ELI_LILLY_AND_COMPANY-US201111004215

PATIENT
  Sex: Female
  Weight: 60 kg

DRUGS (3)
  1. OPIOIDS [Concomitant]
  2. SKELAXIN [Concomitant]
     Indication: MUSCLE SPASMS
     Dosage: 800 MG, TID
  3. FORTEO [Suspect]
     Indication: OSTEOPOROSIS
     Dosage: 20 UG, QD
     Route: 058
     Dates: start: 20110308

REACTIONS (6)
  - HIP FRACTURE [None]
  - GAIT DISTURBANCE [None]
  - FALL [None]
  - FRACTURED SACRUM [None]
  - TRAUMATIC FRACTURE [None]
  - ACCIDENT [None]
